FAERS Safety Report 8169732-6 (Version None)
Quarter: 2012Q1

REPORT INFORMATION
  Report Type: 
  Country: None (occurrence: None)
  Receive Date: 20120228
  Receipt Date: 20120216
  Transmission Date: 20120608
  Serious: Yes (Hospitalization)
  Sender: FDA-Public Use
  Company Number: SE-JNJFOC-20120210248

PATIENT
  Sex: Male

DRUGS (16)
  1. MORPHINE SULFATE [Concomitant]
     Route: 065
  2. PULMICORT-100 [Concomitant]
     Route: 065
  3. REMICADE [Suspect]
     Indication: PYODERMA GANGRENOSUM
     Route: 042
     Dates: start: 20120116
  4. MOVIPREP [Concomitant]
     Route: 065
  5. KALCIPOS [Concomitant]
     Route: 065
  6. PREDNISOLONE [Concomitant]
     Route: 065
  7. ORALOVITE [Concomitant]
     Route: 065
  8. ATARAX [Concomitant]
     Route: 065
  9. ALLOPURINOL [Concomitant]
     Route: 065
  10. SPIRIVA [Concomitant]
     Route: 065
  11. REMICADE [Suspect]
     Indication: CROHN'S DISEASE
     Route: 042
     Dates: start: 20120116
  12. REMICADE [Suspect]
     Route: 042
     Dates: start: 20120130
  13. OMEPRAZOLE [Concomitant]
     Route: 065
  14. CILAXORAL [Concomitant]
     Route: 065
  15. ACETAMINOPHEN [Concomitant]
     Route: 065
  16. REMICADE [Suspect]
     Route: 042
     Dates: start: 20120130

REACTIONS (4)
  - DRUG INEFFECTIVE [None]
  - ILEUS PARALYTIC [None]
  - FAECES HARD [None]
  - PNEUMONIA [None]
